FAERS Safety Report 15974613 (Version 6)
Quarter: 2019Q4

REPORT INFORMATION
  Report Type: Report from Study
  Country: US (occurrence: US)
  Receive Date: 20190218
  Receipt Date: 20191213
  Transmission Date: 20200122
  Serious: No
  Sender: FDA-Public Use
  Company Number: PHEH2019US006905

PATIENT
  Sex: Female

DRUGS (2)
  1. COSENTYX [Suspect]
     Active Substance: SECUKINUMAB
     Dosage: 300 MG, QMO
     Route: 058
  2. COSENTYX [Suspect]
     Active Substance: SECUKINUMAB
     Indication: PSORIATIC ARTHROPATHY
     Dosage: 150 MG, UNK
     Route: 058

REACTIONS (12)
  - Joint swelling [Unknown]
  - Eye discharge [Unknown]
  - Urinary tract infection [Unknown]
  - Back pain [Unknown]
  - Temperature intolerance [Unknown]
  - Carpal tunnel syndrome [Unknown]
  - Nasopharyngitis [Unknown]
  - Pain in extremity [Unknown]
  - Cerebral disorder [Unknown]
  - Hordeolum [Unknown]
  - Spinal osteoarthritis [Unknown]
  - Arthralgia [Unknown]
